FAERS Safety Report 18550642 (Version 2)
Quarter: 2021Q1

REPORT INFORMATION
  Report Type: Spontaneous
  Country: US (occurrence: US)
  Receive Date: 20201126
  Receipt Date: 20210216
  Transmission Date: 20210419
  Serious: No
  Sender: FDA-Public Use
  Company Number: US-PFIZER INC-2020464019

PATIENT
  Age: 69 Year
  Sex: Female

DRUGS (2)
  1. MEKTOVI [Suspect]
     Active Substance: BINIMETINIB
     Dosage: 45 MG
  2. BRAFTOVI [Suspect]
     Active Substance: ENCORAFENIB
     Dosage: 450 MG

REACTIONS (2)
  - Malaise [Unknown]
  - Pain [Unknown]
